FAERS Safety Report 15290418 (Version 1)
Quarter: 2018Q3

REPORT INFORMATION
  Report Type: Spontaneous
  Country: US (occurrence: US)
  Receive Date: 20180817
  Receipt Date: 20180817
  Transmission Date: 20181010
  Serious: Yes (Other)
  Sender: FDA-Public Use
  Company Number: US-BAYER-2018-152207

PATIENT
  Age: 36 Year
  Sex: Female

DRUGS (1)
  1. MIRENA [Suspect]
     Active Substance: LEVONORGESTREL
     Dosage: 20 MCG/24HR, CONT
     Route: 015
     Dates: start: 200705, end: 20170925

REACTIONS (9)
  - Visual impairment [None]
  - Blindness [None]
  - Tinnitus [None]
  - Diplopia [None]
  - Tunnel vision [None]
  - Headache [None]
  - Intracranial pressure increased [None]
  - Papilloedema [None]
  - Vision blurred [None]

NARRATIVE: CASE EVENT DATE: 2009
